FAERS Safety Report 6028709-7 (Version None)
Quarter: 2008Q4

REPORT INFORMATION
  Report Type: 
  Country: None (occurrence: None)
  Receive Date: 20081222
  Receipt Date: 20081112
  Transmission Date: 20090506
  Serious: No
  Sender: FDA-Public Use
  Company Number: ALL1-2008-02975

PATIENT
  Age: 14 Year
  Sex: Male
  Weight: 63.5 kg

DRUGS (4)
  1. VYVANSE [Suspect]
     Indication: ATTENTION DEFICIT/HYPERACTIVITY DISORDER
     Dosage: 30 MG, 1X/DAY:QD, ORAL ; 30 MG, 1X/DAY:QD, ORAL
     Route: 048
     Dates: start: 20070101, end: 20080201
  2. VYVANSE [Suspect]
     Indication: ATTENTION DEFICIT/HYPERACTIVITY DISORDER
     Dosage: 30 MG, 1X/DAY:QD, ORAL ; 30 MG, 1X/DAY:QD, ORAL
     Route: 048
     Dates: start: 20080901
  3. ALLERGY MEDICATION [Concomitant]
  4. CONCERTA [Concomitant]

REACTIONS (4)
  - ANOREXIA [None]
  - IRRITABILITY [None]
  - OFF LABEL USE [None]
  - WEIGHT INCREASED [None]
